FAERS Safety Report 10664926 (Version 2)
Quarter: 2014Q4

REPORT INFORMATION
  Report Type: Report from Study
  Country: US (occurrence: US)
  Receive Date: 20141219
  Receipt Date: 20141219
  Transmission Date: 20150529
  Serious: Yes (Other)
  Sender: FDA-Public Use
  Company Number: US-BAYER-2014-102746

PATIENT
  Age: 63 Year
  Sex: Female
  Weight: 86 kg

DRUGS (23)
  1. VITAMIN E [Concomitant]
     Active Substance: .ALPHA.-TOCOPHEROL
  2. PANTOPRAZOLE [Concomitant]
     Active Substance: PANTOPRAZOLE SODIUM
  3. STIVARGA [Suspect]
     Active Substance: REGORAFENIB
     Indication: METASTASES TO LUNG
     Dosage: 120 MG, TOTAL DAILY DOSE
     Route: 048
     Dates: start: 20140701, end: 20141114
  4. ASPIRIN. [Concomitant]
     Active Substance: ASPIRIN
  5. VITAMIN D3 [Concomitant]
     Active Substance: CHOLECALCIFEROL
  6. MAGNESIUM [Concomitant]
     Active Substance: MAGNESIUM
  7. MYRRH TINCTURE. [Concomitant]
     Active Substance: MYRRH TINCTURE
  8. CAPECITABINE. [Concomitant]
     Active Substance: CAPECITABINE
  9. ARIXTRA [Concomitant]
     Active Substance: FONDAPARINUX SODIUM
  10. METFORMIN HCL [Concomitant]
     Active Substance: METFORMIN HYDROCHLORIDE
  11. IMODIUM [Concomitant]
     Active Substance: LOPERAMIDE HYDROCHLORIDE
  12. FLAXSEED [Concomitant]
     Active Substance: FLAX SEED
  13. STIVARGA [Suspect]
     Active Substance: REGORAFENIB
     Indication: METASTASES TO DIAPHRAGM
  14. HYZAAR [Concomitant]
     Active Substance: HYDROCHLOROTHIAZIDE\LOSARTAN POTASSIUM
  15. BIOTIN [Concomitant]
     Active Substance: BIOTIN
  16. CALCIUM [Concomitant]
     Active Substance: CALCIUM
  17. STIVARGA [Suspect]
     Active Substance: REGORAFENIB
     Indication: METASTASES TO LIVER
     Dosage: 120 MG, TOTAL DAILY DOSE
     Route: 048
     Dates: start: 20140703
  18. CENTRUM SILVER [Concomitant]
     Active Substance: VITAMINS
  19. ZINC [Concomitant]
     Active Substance: ZINC\ZINC CHLORIDE
  20. LUTEIN [Concomitant]
     Active Substance: LUTEIN
  21. STIVARGA [Suspect]
     Active Substance: REGORAFENIB
     Indication: COLON CANCER STAGE IV
     Dosage: 120 MG, TOTAL DAILY DOSE
     Route: 048
     Dates: start: 20140624
  22. LANTUS [Concomitant]
     Active Substance: INSULIN GLARGINE
  23. LOSARTAN [Concomitant]
     Active Substance: LOSARTAN

REACTIONS (17)
  - Skin texture abnormal [Unknown]
  - Paraesthesia [Recovered/Resolved]
  - Burning sensation [Unknown]
  - Fatigue [Unknown]
  - Metastases to liver [None]
  - Colon cancer [Unknown]
  - Muscle spasms [Unknown]
  - Skin discolouration [Not Recovered/Not Resolved]
  - Chest pain [Unknown]
  - Skin exfoliation [Recovered/Resolved]
  - Pain in extremity [Recovered/Resolved]
  - Pyrexia [Recovered/Resolved]
  - Epistaxis [Unknown]
  - Weight decreased [Unknown]
  - Alopecia [Unknown]
  - Burning sensation [Recovered/Resolved]
  - Pruritus [Unknown]

NARRATIVE: CASE EVENT DATE: 20140704
